FAERS Safety Report 10653988 (Version 2)
Quarter: 2015Q2

REPORT INFORMATION
  Report Type: Spontaneous
  Country: DE (occurrence: DE)
  Receive Date: 20141216
  Receipt Date: 20150512
  Transmission Date: 20150821
  Serious: Yes (Other)
  Sender: FDA-Public Use
  Company Number: DE-UCBSA-2014021713

PATIENT
  Sex: Male

DRUGS (1)
  1. NEUPRO [Suspect]
     Active Substance: ROTIGOTINE
     Indication: PARKINSON^S DISEASE
     Dosage: 8 MG, ONCE DAILY (QD) (8MG/24HOUR)

REACTIONS (4)
  - Application site rash [Unknown]
  - Blister [Unknown]
  - Rash generalised [Unknown]
  - Application site pruritus [Unknown]

NARRATIVE: CASE EVENT DATE: 2014
